FAERS Safety Report 9119701 (Version 2)
Quarter: 2013Q2

REPORT INFORMATION
  Report Type: Spontaneous
  Country: US (occurrence: US)
  Receive Date: 20130226
  Receipt Date: 20130516
  Transmission Date: 20140414
  Serious: Yes (Hospitalization)
  Sender: FDA-Public Use
  Company Number: US-009507513-1302USA010944

PATIENT
  Age: 18 Year
  Sex: Female
  Weight: 55.69 kg

DRUGS (2)
  1. IMPLANON [Suspect]
     Indication: CONTRACEPTION
     Dosage: UPPER LEFT ARM
     Dates: start: 20110708
  2. VITAMINS (UNSPECIFIED) [Concomitant]

REACTIONS (8)
  - Mental disorder [Unknown]
  - Nervous system disorder [Not Recovered/Not Resolved]
  - Device dislocation [Unknown]
  - Tinnitus [Not Recovered/Not Resolved]
  - Pain [Not Recovered/Not Resolved]
  - Feeling hot [Not Recovered/Not Resolved]
  - Menorrhagia [Recovered/Resolved]
  - Menstruation delayed [Not Recovered/Not Resolved]
